FAERS Safety Report 9745428 (Version 1)
Quarter: 2013Q4

REPORT INFORMATION
  Report Type: Spontaneous
  Country: US (occurrence: US)
  Receive Date: 20131211
  Receipt Date: 20131211
  Transmission Date: 20140711
  Serious: No
  Sender: FDA-Public Use
  Company Number: US-009507513-1312USA004734

PATIENT
  Age: 32 Year
  Sex: Female
  Weight: 74.83 kg

DRUGS (3)
  1. NUVARING [Suspect]
     Indication: CONTRACEPTION
     Dosage: SINGLE RING
     Route: 067
     Dates: start: 2008
  2. ZOLOFT [Concomitant]
     Dosage: UNK
     Dates: end: 20131204
  3. WELLBUTRIN [Concomitant]
     Dosage: UNK
     Dates: start: 20131204

REACTIONS (3)
  - Menstruation normal [Not Recovered/Not Resolved]
  - Vaginal haemorrhage [Not Recovered/Not Resolved]
  - Headache [Not Recovered/Not Resolved]
